FAERS Safety Report 13391707 (Version 3)
Quarter: 2017Q2

REPORT INFORMATION
  Report Type: Report from Study
  Country: US (occurrence: US)
  Receive Date: 20170331
  Receipt Date: 20170615
  Transmission Date: 20170830
  Serious: Yes (Other)
  Sender: FDA-Public Use
  Company Number: US-SAOL THERAPEUTICS-2017SAO00578

PATIENT
  Age: 52 Year
  Sex: Female
  Weight: 48.73 kg

DRUGS (36)
  1. BUPIVACAINE. [Suspect]
     Active Substance: BUPIVACAINE
     Dosage: 5.395 MG, \DAY
     Route: 037
     Dates: start: 20170213, end: 20170213
  2. MORPHINE [Suspect]
     Active Substance: MORPHINE
     Dosage: 0.298 MG, \DAY
     Route: 037
     Dates: start: 20161027, end: 20170213
  3. PREDNISONE. [Concomitant]
     Active Substance: PREDNISONE
     Dosage: 5 MG, 2X/DAY
     Route: 048
  4. COMPOUNDED BACLOFEN [Suspect]
     Active Substance: BACLOFEN
     Dosage: 26.97 ?G, \DAY
     Route: 037
     Dates: start: 20170213, end: 20170213
  5. COMPOUNDED BACLOFEN [Suspect]
     Active Substance: BACLOFEN
     Dosage: 47.72 ?G, \DAY
     Route: 037
     Dates: start: 20170214
  6. BUPIVACAINE. [Suspect]
     Active Substance: BUPIVACAINE
     Dosage: 10.954 MG, \DAY
     Route: 037
     Dates: start: 20161027, end: 20170213
  7. COMPOUNDED BACLOFEN [Suspect]
     Active Substance: BACLOFEN
     Dosage: 54.77 ?G, \DAY
     Route: 037
     Dates: start: 20161027, end: 20170213
  8. COMPOUNDED BACLOFEN [Suspect]
     Active Substance: BACLOFEN
     Dosage: 29.96 ?G, \DAY
     Route: 037
     Dates: start: 20170213
  9. COMPOUNDED BACLOFEN [Suspect]
     Active Substance: BACLOFEN
     Dosage: UNK
  10. PROBIOTIC COLON SUPPORT [Concomitant]
     Dosage: UNK
  11. TOPICAINE [Concomitant]
     Active Substance: LIDOCAINE
     Dosage: UNK, AS NEEDED
     Route: 061
     Dates: start: 20170131
  12. VAGIFEM [Concomitant]
     Active Substance: ESTRADIOL
     Dosage: 10 ?G, 2X/WEEK
  13. MORPHINE [Suspect]
     Active Substance: MORPHINE
     Dosage: 0.365 MG, \DAY
     Route: 037
     Dates: start: 20161027, end: 20170213
  14. MORPHINE [Suspect]
     Active Substance: MORPHINE
     Dosage: 0.199 MG, \DAY
     Dates: start: 20170214
  15. MORPHINE [Suspect]
     Active Substance: MORPHINE
     Dosage: 0.318 MG, \DAY
     Route: 037
     Dates: start: 20170214
  16. IMITREX [Concomitant]
     Active Substance: SUMATRIPTAN SUCCINATE
     Dosage: 100 UNK, UP TO 2X/DAY
     Dates: start: 20170110
  17. TOPAMAX [Concomitant]
     Active Substance: TOPIRAMATE
     Dosage: 100 MG, 3X/DAY
     Route: 048
     Dates: start: 20170110
  18. CEFADROXIL. [Concomitant]
     Active Substance: CEFADROXIL
     Dosage: 1 G, 1X/DAY
     Route: 048
  19. ORENCIA CLICKJECT [Concomitant]
     Dosage: 1 DOSAGE UNITS, 1X/WEEK
     Route: 058
  20. VAGIFEM [Concomitant]
     Active Substance: ESTRADIOL
     Dosage: 10 ?G, 1X/DAY
     Route: 067
  21. VIVELLE-DOT PATCH [Concomitant]
     Dosage: 1 DOSAGE UNITS, 2X/WEEK
     Route: 062
  22. ZOFRAN [Concomitant]
     Active Substance: ONDANSETRON HYDROCHLORIDE
     Dosage: 4 MG, UP TO 4X/DAY
     Route: 048
  23. COMPOUNDED BACLOFEN [Suspect]
     Active Substance: BACLOFEN
     Dosage: 44.76 ?G, \DAY
     Route: 037
     Dates: start: 20170213, end: 20170213
  24. BUPIVACAINE. [Suspect]
     Active Substance: BUPIVACAINE
     Dosage: 7.414 MG, \DAY
     Route: 037
     Dates: start: 20161027, end: 20170213
  25. DICLOFENAC SODIUM. [Concomitant]
     Active Substance: DICLOFENAC SODIUM
     Dosage: 75 MG, 2X/DAY
     Route: 048
  26. FLECTOR [Concomitant]
     Active Substance: DICLOFENAC EPOLAMINE
     Dosage: 1 DOSAGE UNITS, 2X/DAY
     Dates: start: 20170110
  27. FOLIC ACID. [Concomitant]
     Active Substance: FOLIC ACID
     Dosage: 20 MG, 1X/DAY
     Route: 048
     Dates: start: 20170110
  28. BUPIVACAINE. [Suspect]
     Active Substance: BUPIVACAINE
     Dosage: 5.991 MG, \DAY
     Route: 037
     Dates: start: 20170213
  29. BUPIVACAINE. [Suspect]
     Active Substance: BUPIVACAINE
     Dosage: 9.543 MG, \DAY
     Route: 037
     Dates: start: 20170214
  30. MORPHINE [Suspect]
     Active Substance: MORPHINE
     Dosage: 0.247 MG, \DAY
     Route: 037
     Dates: start: 20170110, end: 20170213
  31. BOTOX [Concomitant]
     Active Substance: ONABOTULINUMTOXINA
     Dosage: 200 UNK, UNK
     Route: 051
     Dates: start: 20150930
  32. MELOXICAM. [Concomitant]
     Active Substance: MELOXICAM
     Dosage: 15 MG, 1X/DAY
     Route: 048
  33. URIBEL [Concomitant]
     Active Substance: HYOSCYAMINE SULFATE\METHENAMINE\METHYLENE BLUE\PHENYL SALICYLATE\SODIUM PHOSPHATE, MONOBASIC, MONOHYDRATE
  34. COMPOUNDED BACLOFEN [Suspect]
     Active Substance: BACLOFEN
     Dosage: 37.07 ?G, \DAY
     Route: 037
     Dates: start: 20161027, end: 20170213
  35. BUPIVACAINE. [Suspect]
     Active Substance: BUPIVACAINE
     Dosage: 8.952 MG, \DAY
     Route: 037
     Dates: start: 20170213, end: 20170213
  36. MORPHINE [Suspect]
     Active Substance: MORPHINE
     Dosage: 0.179 MG, \DAY
     Route: 037
     Dates: start: 20170213, end: 20170213

REACTIONS (22)
  - Road traffic accident [Recovered/Resolved]
  - Feeling abnormal [Recovered/Resolved]
  - Rash [Unknown]
  - Memory impairment [Unknown]
  - Coccydynia [Unknown]
  - Joint range of motion decreased [Recovered/Resolved]
  - Anxiety [Unknown]
  - Headache [Recovering/Resolving]
  - Muscle spasms [None]
  - Hypotension [Recovered/Resolved]
  - Insomnia [Unknown]
  - Fatigue [Unknown]
  - Constipation [Unknown]
  - Muscular weakness [Unknown]
  - Off label use [Unknown]
  - Pain [Recovered/Resolved]
  - Device dislocation [Recovered/Resolved]
  - Nausea [Recovering/Resolving]
  - Arthralgia [Unknown]
  - Hypoaesthesia [Recovered/Resolved]
  - Nephrolithiasis [Recovered/Resolved]
  - Vomiting [Recovering/Resolving]

NARRATIVE: CASE EVENT DATE: 2015
